FAERS Safety Report 10190296 (Version 1)
Quarter: 2014Q2

REPORT INFORMATION
  Report Type: Spontaneous
  Country: US (occurrence: None)
  Receive Date: 20140521
  Receipt Date: 20140521
  Transmission Date: 20141212
  Serious: Yes (Other)
  Sender: FDA-Public Use
  Company Number: None

PATIENT
  Age: 55 Year
  Sex: Female

DRUGS (2)
  1. SOVALDI [Suspect]
     Route: 048
     Dates: start: 20140428
  2. OLYSIO [Suspect]

REACTIONS (2)
  - Blood pressure increased [None]
  - Blood pressure fluctuation [None]
